FAERS Safety Report 14127355 (Version 1)
Quarter: 2017Q4

REPORT INFORMATION
  Report Type: Spontaneous
  Country: US (occurrence: US)
  Receive Date: 20171026
  Receipt Date: 20171026
  Transmission Date: 20180321
  Serious: No
  Sender: FDA-Public Use
  Company Number: US-TEVA-714694USA

PATIENT
  Age: 72 Year
  Sex: Female
  Weight: 59.02 kg

DRUGS (1)
  1. CARBIDOPA AND LEVODOPA [Suspect]
     Active Substance: CARBIDOPA\LEVODOPA
     Indication: PARKINSON^S DISEASE
     Dosage: 25 MG/100 MG
     Route: 065
     Dates: start: 20161114

REACTIONS (2)
  - Bladder pain [Recovered/Resolved]
  - Dyspepsia [Recovered/Resolved]
